FAERS Safety Report 7166691-X (Version None)
Quarter: 2010Q4

REPORT INFORMATION
  Report Type: 
  Country: None (occurrence: None)
  Receive Date: 20101216
  Receipt Date: 20101208
  Transmission Date: 20110411
  Serious: Yes (Other)
  Sender: FDA-Public Use
  Company Number: US-ROCHE-727162

PATIENT
  Sex: Male
  Weight: 56.7 kg

DRUGS (2)
  1. ACCUTANE [Suspect]
     Indication: ACNE
     Route: 065
     Dates: start: 20040415, end: 20040515
  2. ACCUTANE [Suspect]
     Route: 065
     Dates: start: 20081209, end: 20090612

REACTIONS (3)
  - ANKYLOSING SPONDYLITIS [None]
  - COLITIS ULCERATIVE [None]
  - GASTROINTESTINAL INJURY [None]
